FAERS Safety Report 6257891-1 (Version None)
Quarter: 2009Q3

REPORT INFORMATION
  Report Type: 
  Country: None (occurrence: None)
  Receive Date: 20090702
  Receipt Date: 20090617
  Transmission Date: 20100115
  Serious: Yes (Hospitalization)
  Sender: FDA-Public Use
  Company Number: 2009000788

PATIENT
  Age: 70 Year
  Sex: Male

DRUGS (4)
  1. ERLOTINIB  (TABLET) [Suspect]
     Indication: NON-SMALL CELL LUNG CANCER
     Dosage: (150 MG, QD), ORAL
     Route: 048
     Dates: start: 20090112, end: 20090226
  2. MORPHINE SULFATE INJ [Concomitant]
  3. KETOPROFEN [Concomitant]
  4. CP-751,871 [Suspect]

REACTIONS (2)
  - ANAEMIA [None]
  - DISEASE PROGRESSION [None]
